FAERS Safety Report 6999532-1 (Version None)
Quarter: 2010Q3

REPORT INFORMATION
  Report Type: 
  Country: None (occurrence: None)
  Receive Date: 20100920
  Receipt Date: 20100528
  Transmission Date: 20110219
  Serious: Yes (Hospitalization, Other)
  Sender: FDA-Public Use
  Company Number: US-ASTRAZENECA-2010SE24707

PATIENT
  Age: 50 Year
  Sex: Female
  Weight: 49 kg

DRUGS (7)
  1. SEROQUEL [Suspect]
     Indication: PERSONALITY DISORDER
     Route: 048
  2. SEROQUEL [Suspect]
     Indication: BIPOLAR DISORDER
     Route: 048
  3. SEROQUEL [Suspect]
     Indication: ANXIETY
     Route: 048
  4. SEROQUEL [Suspect]
     Route: 048
  5. SEROQUEL [Suspect]
     Route: 048
  6. SEROQUEL [Suspect]
     Route: 048
  7. CYMBALTA [Concomitant]
     Indication: ANXIETY

REACTIONS (6)
  - CONSTIPATION [None]
  - EYE DISORDER [None]
  - MUSCLE SPASMS [None]
  - MUSCLE TWITCHING [None]
  - OVERDOSE [None]
  - SUICIDE ATTEMPT [None]
